FAERS Safety Report 7516169-6 (Version None)
Quarter: 2011Q2

REPORT INFORMATION
  Report Type: 
  Country: None (occurrence: None)
  Receive Date: 20110601
  Receipt Date: 20110523
  Transmission Date: 20111010
  Serious: Yes (Other)
  Sender: FDA-Public Use
  Company Number: US-ROCHE-778868

PATIENT

DRUGS (3)
  1. DECADRON [Concomitant]
  2. BEVACIZUMAB [Suspect]
     Indication: BRAIN STEM GLIOMA
     Route: 065
  3. TEMOZOLOMIDE [Suspect]
     Indication: BRAIN STEM GLIOMA
     Dosage: DAILY FOR 5 DAYS EVERY 28 DAYS
     Route: 065

REACTIONS (4)
  - HYPERTENSION [None]
  - IMPAIRED HEALING [None]
  - PANCREATITIS [None]
  - LYMPHOPENIA [None]
